FAERS Safety Report 7147926-6 (Version None)
Quarter: 2010Q4

REPORT INFORMATION
  Report Type: 
  Country: None (occurrence: None)
  Receive Date: 20101206
  Receipt Date: 20101206
  Transmission Date: 20110411
  Serious: No
  Sender: FDA-Public Use
  Company Number: None

PATIENT
  Age: 63 Year
  Sex: Female
  Weight: 61.2356 kg

DRUGS (1)
  1. TRIAMCIN W/O PRESERVATIVES 1 GM CORTEZ DRUGS [Suspect]
     Indication: DERMATITIS
     Dosage: TWICE DAILY
     Dates: start: 20090908, end: 20101203

REACTIONS (2)
  - PRODUCT EXPIRATION DATE ISSUE [None]
  - THERMAL BURN [None]
